FAERS Safety Report 11398533 (Version 1)
Quarter: 2015Q3

REPORT INFORMATION
  Report Type: Spontaneous
  Country: US (occurrence: None)
  Receive Date: 20150803
  Receipt Date: 20150803
  Transmission Date: 20151125
  Serious: Yes (Other)
  Sender: FDA-Public Use
  Company Number: USEN-9Q4NTB

PATIENT
  Sex: Male

DRUGS (1)
  1. 3M AVAGARD [Suspect]
     Active Substance: ALCOHOL\CHLORHEXIDINE GLUCONATE
     Indication: PREOPERATIVE CARE
     Dates: start: 20140624

REACTIONS (1)
  - Eye irritation [None]

NARRATIVE: CASE EVENT DATE: 20141021
